FAERS Safety Report 15990061 (Version 3)
Quarter: 2019Q2

REPORT INFORMATION
  Report Type: Report from Study
  Country: SI (occurrence: SI)
  Receive Date: 20190221
  Receipt Date: 20190411
  Transmission Date: 20190711
  Serious: Yes (Hospitalization, Other)
  Sender: FDA-Public Use
  Company Number: SI-BAYER-2018-231959

PATIENT
  Age: 67 Year
  Sex: Male

DRUGS (10)
  1. NEXAVAR [Suspect]
     Active Substance: SORAFENIB
     Indication: HEPATIC CIRRHOSIS
     Dosage: UNK
     Dates: start: 20181211, end: 20190208
  2. TRAMAL [Concomitant]
     Active Substance: TRAMADOL
     Dosage: 2X100 MG
  3. ALDACTONE [Concomitant]
     Active Substance: SPIRONOLACTONE
     Dosage: 50 MG
  4. NEXAVAR [Suspect]
     Active Substance: SORAFENIB
     Indication: HEPATOCELLULAR CARCINOMA
     Dosage: UNK
     Dates: start: 20181114, end: 20181127
  5. CONTROLOC [Concomitant]
     Active Substance: PANTOPRAZOLE SODIUM
     Dosage: 40 MG
  6. FOLACIN [FOLIC ACID] [Concomitant]
     Active Substance: FOLIC ACID
  7. B-COMPLEX [VITAMIN B NOS] [Concomitant]
     Active Substance: VITAMINS
  8. ALFACALCIDOL [Concomitant]
     Active Substance: ALFACALCIDOL
     Dosage: UNK
  9. EDEMID [Concomitant]
     Active Substance: FUROSEMIDE
     Dosage: 2 TBL
  10. PORTALAC [Concomitant]
     Active Substance: LACTULOSE

REACTIONS (7)
  - Osteoporosis [Not Recovered/Not Resolved]
  - Haemorrhage subcutaneous [Recovered/Resolved]
  - Tachycardia [Recovered/Resolved]
  - Fall [None]
  - Gait disturbance [Recovering/Resolving]
  - Orchitis [Not Recovered/Not Resolved]
  - Fatigue [Not Recovered/Not Resolved]

NARRATIVE: CASE EVENT DATE: 20181127
